FAERS Safety Report 6085367-3 (Version None)
Quarter: 2009Q1

REPORT INFORMATION
  Report Type: 
  Country: None (occurrence: None)
  Receive Date: 20090218
  Receipt Date: 20090212
  Transmission Date: 20090719
  Serious: Yes (Hospitalization, Disabling)
  Sender: FDA-Public Use
  Company Number: TPG2009A00137

PATIENT
  Age: 66 Year
  Sex: Female

DRUGS (5)
  1. ACTOS [Suspect]
     Indication: TYPE 2 DIABETES MELLITUS
     Dosage: 45 MG (UNK.,1 IN 1 D);PER ORAL, 30 MG (MG, UNKNOWN);PER ORAL
     Route: 048
     Dates: start: 20050101, end: 20081102
  2. ACTOS [Suspect]
     Indication: TYPE 2 DIABETES MELLITUS
     Dosage: 45 MG (UNK.,1 IN 1 D);PER ORAL, 30 MG (MG, UNKNOWN);PER ORAL
     Route: 048
     Dates: start: 20081103, end: 20090119
  3. METOPROLOL SUCCINATE [Concomitant]
  4. MARCUMAR [Concomitant]
  5. LOVASTATIN [Concomitant]

REACTIONS (2)
  - OSTEOPOROSIS [None]
  - SPINAL FRACTURE [None]
